FAERS Safety Report 4367267-X (Version None)
Quarter: 2004Q2

REPORT INFORMATION
  Report Type: 
  Country: None (occurrence: None)
  Receive Date: 20040524
  Receipt Date: 20040505
  Transmission Date: 20050107
  Serious: Yes (Other)
  Sender: FDA-Public Use
  Company Number: 2004212411US

PATIENT
  Age: 70 Year
  Sex: Female

DRUGS (9)
  1. DETROL LA [Suspect]
     Indication: HYPERTONIC BLADDER
     Dosage: 4 MG, QD, ORAL
     Route: 048
     Dates: start: 19990101
  2. HYZAAR [Concomitant]
  3. INDERAL [Concomitant]
  4. SYNTHROID [Concomitant]
  5. FOLIC ACID [Concomitant]
  6. ASPIRIN [Concomitant]
  7. ZYRTEC [Concomitant]
  8. RENAGEL [Concomitant]
  9. CARTIA XT [Concomitant]

REACTIONS (3)
  - DIALYSIS [None]
  - HYPERTENSION [None]
  - RENAL IMPAIRMENT [None]
